FAERS Safety Report 15850061 (Version 3)
Quarter: 2019Q2

REPORT INFORMATION
  Report Type: Spontaneous
  Country: US (occurrence: US)
  Receive Date: 20190121
  Receipt Date: 20190527
  Transmission Date: 20190711
  Serious: No
  Sender: FDA-Public Use
  Company Number: US-SA-2019SA013161

PATIENT
  Age: 34 Year
  Sex: Female

DRUGS (3)
  1. ADVAIR HFA [Concomitant]
     Active Substance: FLUTICASONE PROPIONATE\SALMETEROL XINAFOATE
     Indication: ASTHMA
     Dosage: UNK UNK, BID, 115-21 MCG
     Route: 055
  2. PAROXETINE. [Concomitant]
     Active Substance: PAROXETINE
     Indication: ANXIETY
     Dosage: 25 MG, QD
     Route: 048
  3. AUBAGIO [Suspect]
     Active Substance: TERIFLUNOMIDE
     Indication: MULTIPLE SCLEROSIS
     Dosage: 14 MG, QD
     Route: 048
     Dates: start: 20181215

REACTIONS (6)
  - Vomiting [Recovered/Resolved]
  - Alopecia [Unknown]
  - Paraesthesia [Not Recovered/Not Resolved]
  - Stress [Unknown]
  - Abdominal discomfort [Recovered/Resolved]
  - Injury [Unknown]

NARRATIVE: CASE EVENT DATE: 201905
